FAERS Safety Report 17930712 (Version 2)
Quarter: 2020Q3

REPORT INFORMATION
  Report Type: Spontaneous
  Country: US (occurrence: US)
  Receive Date: 20200623
  Receipt Date: 20200723
  Transmission Date: 20201103
  Serious: Yes (Other)
  Sender: FDA-Public Use
  Company Number: US-ASTRAZENECA-2020SE77542

PATIENT
  Age: 1093 Month
  Sex: Female
  Weight: 48.1 kg

DRUGS (3)
  1. SYMBICORT [Suspect]
     Active Substance: BUDESONIDE\FORMOTEROL FUMARATE DIHYDRATE
     Indication: CHRONIC OBSTRUCTIVE PULMONARY DISEASE
     Dosage: 160?4.5 TWO PUFFS TWICE A DAY
     Route: 055
     Dates: start: 2020
  2. XARELTO [Concomitant]
     Active Substance: RIVAROXABAN
     Indication: ATRIAL FIBRILLATION
  3. GABAPENTIN. [Concomitant]
     Active Substance: GABAPENTIN
     Indication: OCCIPITAL NEURALGIA
     Dates: start: 2013

REACTIONS (8)
  - Feeding disorder [Unknown]
  - Arthralgia [Unknown]
  - Food poisoning [Unknown]
  - Occipital neuralgia [Not Recovered/Not Resolved]
  - Device malfunction [Unknown]
  - Weight decreased [Unknown]
  - Vomiting [Unknown]
  - Drug delivery system issue [Unknown]

NARRATIVE: CASE EVENT DATE: 202003
